FAERS Safety Report 9689495 (Version 2)
Quarter: 2015Q1

REPORT INFORMATION
  Report Type: Spontaneous
  Country: DK (occurrence: DK)
  Receive Date: 20131114
  Receipt Date: 20150316
  Transmission Date: 20150721
  Serious: Yes (Life-Threatening, Hospitalization)
  Sender: FDA-Public Use
  Company Number: DK-009507513-1311DNK004115

PATIENT
  Age: 87 Year
  Sex: Female

DRUGS (14)
  1. ELTROXIN [Concomitant]
     Active Substance: LEVOTHYROXINE
  2. CARVEDILOL. [Concomitant]
     Active Substance: CARVEDILOL
  3. BETOLVEX [Concomitant]
     Active Substance: CYANOCOBALAMIN
     Indication: VITAMIN SUPPLEMENTATION
  4. SIMVASTATIN. [Concomitant]
     Active Substance: SIMVASTATIN
  5. PERILAX [Concomitant]
     Dosage: DOSAGE: UNKNOWN
  6. FURIX [Concomitant]
     Active Substance: FUROSEMIDE
     Dosage: DOSIS: UKENDT
     Route: 048
  7. PINEX [Concomitant]
     Active Substance: ACETAMINOPHEN
  8. KALEORID [Concomitant]
     Active Substance: POTASSIUM CHLORIDE
  9. JERN C [Concomitant]
  10. CITALOPRAM ORION [Suspect]
     Active Substance: CITALOPRAM HYDROBROMIDE
     Indication: PRODUCT USED FOR UNKNOWN INDICATION
     Route: 048
     Dates: start: 20131017, end: 20131025
  11. FURIX [Concomitant]
     Active Substance: FUROSEMIDE
     Dosage: DOSIS: UKENDT
     Route: 048
  12. PERILAX [Concomitant]
     Dosage: DOSAGE: UNKNOWN
  13. COZAAR COMP. 100 MG/12,5 MG [Suspect]
     Active Substance: HYDROCHLOROTHIAZIDE\LOSARTAN POTASSIUM
     Indication: HYPERTENSION
     Dosage: STYRKE: 100+12,5 MG.
     Route: 048
     Dates: start: 2002, end: 20131028
  14. CLOPIDOGREL [Concomitant]
     Active Substance: CLOPIDOGREL BISULFATE

REACTIONS (8)
  - Hyponatraemia [Recovered/Resolved]
  - Nausea [Recovering/Resolving]
  - Malaise [Unknown]
  - Disability [Recovering/Resolving]
  - Vomiting [Recovering/Resolving]
  - Dehydration [Recovered/Resolved]
  - Dizziness [Unknown]
  - Fatigue [Unknown]

NARRATIVE: CASE EVENT DATE: 20131025
